FAERS Safety Report 11129493 (Version 1)
Quarter: 2015Q2

REPORT INFORMATION
  Report Type: Spontaneous
  Country: FR (occurrence: FR)
  Receive Date: 20150521
  Receipt Date: 20150521
  Transmission Date: 20150821
  Serious: Yes (Hospitalization, Other)
  Sender: FDA-Public Use
  Company Number: FR-GLENMARK PHARMACEUTICALS EUROPE LIMITED-2015GMK017028

PATIENT
  Age: 64 Year
  Sex: Female

DRUGS (3)
  1. FLUINDIONE [Interacting]
     Active Substance: FLUINDIONE
     Indication: THROMBOPHLEBITIS
     Dosage: UNK
     Route: 048
  2. ROPINIROLE. [Suspect]
     Active Substance: ROPINIROLE
     Indication: PARKINSON^S DISEASE
     Dosage: 6 MG, QD, DURING THE FIRST MONTH
  3. ROPINIROLE. [Interacting]
     Active Substance: ROPINIROLE
     Dosage: 8 MG, QD

REACTIONS (3)
  - Intraventricular haemorrhage [Recovered/Resolved]
  - Cerebellar haematoma [None]
  - Drug interaction [Recovered/Resolved]
